FAERS Safety Report 11517292 (Version 2)
Quarter: 2015Q3

REPORT INFORMATION
  Report Type: Spontaneous
  Country: BE (occurrence: BE)
  Receive Date: 20150917
  Receipt Date: 20150923
  Transmission Date: 20151125
  Serious: Yes (Hospitalization, Other)
  Sender: FDA-Public Use
  Company Number: BE-ASTRAZENECA-2015SE89304

PATIENT
  Age: 852 Month
  Sex: Male

DRUGS (7)
  1. BRILIQUE [Suspect]
     Active Substance: TICAGRELOR
     Indication: ACUTE CORONARY SYNDROME
     Route: 048
     Dates: start: 20140410
  2. SELOZOK [Concomitant]
     Active Substance: METOPROLOL SUCCINATE
  3. UNI-DIAMICRON [Concomitant]
     Dosage: 60 MG 1X 1/2/DAY
  4. ASAFLOW [Concomitant]
     Active Substance: ASPIRIN
  5. METFORMAX [Concomitant]
     Active Substance: METFORMIN HYDROCHLORIDE
  6. SERETIDE [Concomitant]
     Active Substance: FLUTICASONE FUROATE\SALMETEROL XINAFOATE
     Dosage: 50/500 2X1 PUFF/DAY
  7. SPIRIVA [Concomitant]
     Active Substance: TIOTROPIUM BROMIDE MONOHYDRATE

REACTIONS (4)
  - Lactic acidosis [Unknown]
  - Epistaxis [Unknown]
  - Sinus node dysfunction [Unknown]
  - Atrial tachycardia [Unknown]

NARRATIVE: CASE EVENT DATE: 201405
